FAERS Safety Report 25938972 (Version 3)
Quarter: 2025Q4

REPORT INFORMATION
  Report Type: Report from Study
  Country: CA (occurrence: CA)
  Receive Date: 20251019
  Receipt Date: 20251110
  Transmission Date: 20260117
  Serious: Yes (Hospitalization)
  Sender: ABBVIE
  Company Number: CA-ABBVIE-6461010

PATIENT
  Age: 66 Year
  Sex: Female

DRUGS (8)
  1. VYALEV [Suspect]
     Active Substance: FOSCARBIDOPA\FOSLEVODOPA
     Indication: Product used for unknown indication
     Dosage: 0.35 ML/HR
     Route: 058
     Dates: start: 20240920
  2. CARBIDOPA AND LEVODOPA [Concomitant]
     Active Substance: CARBIDOPA\LEVODOPA
     Indication: Product used for unknown indication
     Dosage: 100/25 1-TABLET  EVERY 2.5 HOURS/6 PER DAY
  3. CARBIDOPA AND LEVODOPA [Concomitant]
     Active Substance: CARBIDOPA\LEVODOPA
     Indication: Product used for unknown indication
     Dosage: 200/50 1-TABLET QHS
  4. SERTRALINE [Concomitant]
     Active Substance: SERTRALINE HYDROCHLORIDE
     Indication: Product used for unknown indication
     Dosage: TIME INTERVAL: 0.33333333 DAYS
  5. PANTOPRAZOLE [Concomitant]
     Active Substance: PANTOPRAZOLE
     Indication: Product used for unknown indication
  6. LORAZEPAM [Concomitant]
     Active Substance: LORAZEPAM
     Indication: Product used for unknown indication
     Dosage: TIME INTERVAL: AS NECESSARY
  7. RIVASTIGMINE [Concomitant]
     Active Substance: RIVASTIGMINE
     Indication: Parkinson^s disease
     Dosage: PATIENT ROA- TOPICAL
     Dates: start: 20250918
  8. SEROQUEL [Concomitant]
     Active Substance: QUETIAPINE FUMARATE
     Indication: Hallucination
     Route: 048
     Dates: start: 20250422

REACTIONS (14)
  - Confusional state [Not Recovered/Not Resolved]
  - Catheter site pain [Unknown]
  - Catheter site infection [Recovered/Resolved]
  - Catheter site erythema [Recovering/Resolving]
  - Catheter site nodule [Unknown]
  - Malabsorption from administration site [Recovering/Resolving]
  - Catheter site erythema [Recovered/Resolved]
  - Device issue [Unknown]
  - Infusion site warmth [Unknown]
  - Fatigue [Unknown]
  - Infusion site bruising [Unknown]
  - Infusion site irritation [Unknown]
  - Delirium [Unknown]
  - Abnormal behaviour [Unknown]

NARRATIVE: CASE EVENT DATE: 20250101
